FAERS Safety Report 17450247 (Version 1)
Quarter: 2020Q1

REPORT INFORMATION
  Report Type: Spontaneous
  Country: US (occurrence: US)
  Receive Date: 20200210
  Receipt Date: 20200210
  Transmission Date: 20200409
  Serious: No
  Sender: FDA-Public Use
  Company Number: None

PATIENT
  Age: 78 Year
  Sex: Female

DRUGS (2)
  1. AMBRISENTAN 10MG [Concomitant]
     Active Substance: AMBRISENTAN
  2. TADALAFIL 20MG TAB [Suspect]
     Active Substance: TADALAFIL
     Route: 048
     Dates: start: 201708

REACTIONS (2)
  - Arthropathy [None]
  - Infection [None]

NARRATIVE: CASE EVENT DATE: 20200210
